FAERS Safety Report 15701476 (Version 1)
Quarter: 2018Q4

REPORT INFORMATION
  Report Type: Report from Study
  Country: None (occurrence: CA)
  Receive Date: 20181207
  Receipt Date: 20181207
  Transmission Date: 20190205
  Serious: Yes (Other)
  Sender: FDA-Public Use
  Company Number: CA-ABBVIE-18K-028-2561440-00

PATIENT
  Age: 63 Year
  Sex: Female

DRUGS (1)
  1. HUMIRA [Suspect]
     Active Substance: ADALIMUMAB
     Indication: COLITIS ULCERATIVE
     Route: 058
     Dates: start: 20181019

REACTIONS (5)
  - Wound [Unknown]
  - Stoma site haemorrhage [Unknown]
  - Stoma site reaction [Unknown]
  - Drug ineffective for unapproved indication [Not Recovered/Not Resolved]
  - Stoma complication [Unknown]

NARRATIVE: CASE EVENT DATE: 2018
